FAERS Safety Report 4402810-3 (Version None)
Quarter: 2004Q3

REPORT INFORMATION
  Report Type: 
  Country: None (occurrence: None)
  Receive Date: 20040720
  Receipt Date: 20040720
  Transmission Date: 20050211
  Serious: Yes (Death)
  Sender: FDA-Public Use
  Company Number: None

PATIENT
  Sex: Female
  Weight: 64.4108 kg

DRUGS (1)
  1. AMIODARONE HCL [Suspect]
     Indication: ATRIAL FIBRILLATION
     Dates: start: 20020906, end: 20021211

REACTIONS (20)
  - ABDOMINAL DISTENSION [None]
  - ACUTE RESPIRATORY DISTRESS SYNDROME [None]
  - ANXIETY [None]
  - ASTHENIA [None]
  - CARDIAC FAILURE CONGESTIVE [None]
  - CARDIOGENIC SHOCK [None]
  - CORONARY ARTERY SURGERY [None]
  - DIZZINESS [None]
  - DRUG INEFFECTIVE [None]
  - DRUG TOXICITY [None]
  - DYSGEUSIA [None]
  - FEELING ABNORMAL [None]
  - HEPATIC CONGESTION [None]
  - INSOMNIA [None]
  - OEDEMA PERIPHERAL [None]
  - PERICARDITIS CONSTRICTIVE [None]
  - PULMONARY FIBROSIS [None]
  - RENAL TUBULAR NECROSIS [None]
  - SURGICAL PROCEDURE REPEATED [None]
  - WEIGHT INCREASED [None]
